FAERS Safety Report 8092476-6 (Version None)
Quarter: 2012Q1

REPORT INFORMATION
  Report Type: 
  Country: None (occurrence: None)
  Receive Date: 20120128
  Receipt Date: 20110728
  Transmission Date: 20120608
  Serious: No
  Sender: FDA-Public Use
  Company Number: US-ABBOTT-11P-163-0842345-00

PATIENT
  Age: 61 Year
  Sex: Male

DRUGS (2)
  1. HUMIRA [Suspect]
     Indication: COLITIS ULCERATIVE
     Dates: start: 20110701
  2. APRISO [Concomitant]
     Indication: COLITIS ULCERATIVE

REACTIONS (2)
  - DRUG INEFFECTIVE [None]
  - COLITIS ULCERATIVE [None]
